FAERS Safety Report 22398908 (Version 6)
Quarter: 2024Q1

REPORT INFORMATION
  Report Type: Spontaneous
  Country: CA (occurrence: CA)
  Receive Date: 20230602
  Receipt Date: 20240228
  Transmission Date: 20240410
  Serious: Yes (Disabling, Other)
  Sender: FDA-Public Use
  Company Number: CA-CELLTRION INC.-2023CA004642

PATIENT

DRUGS (10)
  1. INFLECTRA [Suspect]
     Active Substance: INFLIXIMAB-DYYB
     Indication: Crohn^s disease
     Dosage: 5 MG/KG, Q 0, 2, 6, THEN EVERY 8 WEEKS
     Route: 042
     Dates: start: 20221115
  2. INFLECTRA [Suspect]
     Active Substance: INFLIXIMAB-DYYB
     Dosage: 400 MG SUPPOSED TO RECEIVE 5 MG/KG.
     Route: 042
     Dates: start: 20221128
  3. INFLECTRA [Suspect]
     Active Substance: INFLIXIMAB-DYYB
     Dosage: 400 MG Q 0, 2, 6, THEN EVERY 8 WEEKS
     Route: 042
     Dates: start: 20221229
  4. INFLECTRA [Suspect]
     Active Substance: INFLIXIMAB-DYYB
     Dosage: 400 MG, EVERY 8 WEEKS
     Route: 042
     Dates: start: 20230222
  5. INFLECTRA [Suspect]
     Active Substance: INFLIXIMAB-DYYB
     Dosage: 420 MG, EVERY 8 WEEKS
     Route: 042
     Dates: start: 20230419
  6. INFLECTRA [Suspect]
     Active Substance: INFLIXIMAB-DYYB
     Dosage: 10 MG/KG (405 MG) EVERY 6 WEEKS
     Route: 042
     Dates: start: 20230531, end: 20230531
  7. INFLECTRA [Suspect]
     Active Substance: INFLIXIMAB-DYYB
     Dosage: 10 MG/KG, EVERY 6 WEEKS
     Route: 042
     Dates: start: 20230710
  8. INFLECTRA [Suspect]
     Active Substance: INFLIXIMAB-DYYB
     Dosage: 10MG/KG (840 MG) EVERY 6 WEEKS
     Route: 042
     Dates: start: 20230822
  9. INFLECTRA [Suspect]
     Active Substance: INFLIXIMAB-DYYB
     Dosage: 10MG/KG, EVERY 6 WEEKS
     Route: 042
     Dates: start: 20231227
  10. INFLECTRA [Suspect]
     Active Substance: INFLIXIMAB-DYYB
     Dosage: 10MG/KG, EVERY 6 WEEKS (DOSAGE ADMINISTERED: 850 MG, AFTER 7 WEEKS AND 6 DAYS)
     Route: 042
     Dates: start: 20240220

REACTIONS (13)
  - Frequent bowel movements [Unknown]
  - Fistula [Unknown]
  - Therapeutic response shortened [Unknown]
  - Condition aggravated [Recovered/Resolved]
  - Aphthous ulcer [Unknown]
  - Feeling abnormal [Unknown]
  - Eating disorder [Unknown]
  - Somnolence [Unknown]
  - Arthralgia [Recovered/Resolved]
  - Off label use [Unknown]
  - Off label use [Unknown]
  - Intentional product use issue [Unknown]
  - Inappropriate schedule of product administration [Unknown]

NARRATIVE: CASE EVENT DATE: 20230101
